FAERS Safety Report 5647220-6 (Version None)
Quarter: 2008Q1

REPORT INFORMATION
  Report Type: 
  Country: None (occurrence: None)
  Receive Date: 20080303
  Receipt Date: 20080127
  Transmission Date: 20080703
  Serious: Yes (Other)
  Sender: FDA-Public Use
  Company Number: EG-ROCHE-543296

PATIENT
  Age: 45 Year
  Sex: Male

DRUGS (2)
  1. PEGASYS [Suspect]
     Route: 065
     Dates: start: 20071115
  2. RIBAVIRIN [Concomitant]
     Indication: HEPATITIS C
     Dates: start: 20071115, end: 20071227

REACTIONS (1)
  - INTERSTITIAL LUNG DISEASE [None]
